FAERS Safety Report 9080443 (Version 1)
Quarter: 2013Q1

REPORT INFORMATION
  Report Type: Report from Study
  Country: US (occurrence: US)
  Receive Date: 20130130
  Receipt Date: 20130130
  Transmission Date: 20140127
  Serious: No
  Sender: FDA-Public Use
  Company Number: US-ABBOTT-12P-163-0970434-00

PATIENT
  Sex: Female
  Weight: 49.94 kg

DRUGS (12)
  1. HUMIRA 40 MG/0.8 ML PEN [Suspect]
     Indication: RHEUMATOID ARTHRITIS
     Dates: start: 201201
  2. METHOTREXATE [Suspect]
     Indication: RHEUMATOID ARTHRITIS
     Route: 048
     Dates: start: 2012, end: 201207
  3. METHOTREXATE [Suspect]
     Route: 048
     Dates: start: 201207
  4. METHOTREXATE [Suspect]
     Dates: end: 2012
  5. CYMBALTA [Concomitant]
     Indication: FIBROMYALGIA
  6. PLAQUENIL [Concomitant]
     Indication: RHEUMATOID ARTHRITIS
  7. PREDNISONE [Concomitant]
     Indication: RHEUMATOID ARTHRITIS
  8. ZANAFLEX [Concomitant]
     Indication: FIBROMYALGIA
  9. ZANAFLEX [Concomitant]
     Indication: SCIATICA
  10. LYRICA [Concomitant]
     Indication: FIBROMYALGIA
  11. KLONOPIN [Concomitant]
     Indication: DYSKINESIA
     Dosage: AT HS
  12. ADDERALL [Concomitant]
     Indication: FATIGUE

REACTIONS (4)
  - Antinuclear antibody increased [Unknown]
  - Laboratory test abnormal [Unknown]
  - Injection site pain [Not Recovered/Not Resolved]
  - Blood creatinine increased [Unknown]
